FAERS Safety Report 6462018-7 (Version None)
Quarter: 2009Q4

REPORT INFORMATION
  Report Type: 
  Country: None (occurrence: None)
  Receive Date: 20091123
  Receipt Date: 20091109
  Transmission Date: 20100525
  Serious: Yes (Death, Hospitalization)
  Sender: FDA-Public Use
  Company Number: 2009AC000406

PATIENT
  Age: 69 Year
  Sex: Female

DRUGS (45)
  1. DIGOXIN [Suspect]
     Indication: ATRIAL FIBRILLATION
     Dosage: 0.125 MG;QD;PO
     Route: 048
     Dates: start: 20070220
  2. DIGOXIN [Suspect]
     Indication: ATRIAL FIBRILLATION
     Dosage: 0.25 MG; QD; PO
     Route: 048
     Dates: start: 20070220
  3. PREDNISONE [Concomitant]
  4. IMODIUM [Concomitant]
  5. DILTIZEM [Concomitant]
  6. OXYGEN [Concomitant]
  7. POTASSIUM CHLORIDE [Concomitant]
  8. BUMEX [Concomitant]
  9. ATIVAN [Concomitant]
  10. ADVAIR DISKUS 100/50 [Concomitant]
  11. NEXIUM [Concomitant]
  12. CALCIUM CARBONATE [Concomitant]
  13. ATROVENT [Concomitant]
  14. ALBUTEROL [Concomitant]
  15. ZOLOFT [Concomitant]
  16. PREMARIN [Concomitant]
  17. MULTI-VITAMIN [Concomitant]
  18. ZAROXOLYN [Concomitant]
  19. FUROSEMIDE [Concomitant]
  20. LISINOPRIL [Concomitant]
  21. ADVAIR DISKUS 100/50 [Concomitant]
  22. SERTRALINE HCL [Concomitant]
  23. CYCLOBENZAPRINE [Concomitant]
  24. MAGNESIUM OXIDE [Concomitant]
  25. LORAZEPAM [Concomitant]
  26. METOLAZONE [Concomitant]
  27. HYDROCOD APAP [Concomitant]
  28. FERROUS SULFATE TAB [Concomitant]
  29. METOPROLOL [Concomitant]
  30. FERREX 150 [Concomitant]
  31. LEVAQUIN [Concomitant]
  32. ALENDRONATE SODIUM [Concomitant]
  33. VITAMIN D [Concomitant]
  34. *CALCIUM [Concomitant]
  35. NIFEREX FORTE [Concomitant]
  36. DILTIAZEM [Concomitant]
  37. ZAROXOLYN [Concomitant]
  38. XOPENEX [Concomitant]
  39. ATROVENT [Concomitant]
  40. ZOLOFT [Concomitant]
  41. PROTONIX [Concomitant]
  42. LOPRESSOR [Concomitant]
  43. LEVAQUIN [Concomitant]
  44. TYLENOL (CAPLET) [Concomitant]
  45. POTASSIUM [Concomitant]

REACTIONS (54)
  - ABASIA [None]
  - AMNESIA [None]
  - ANAEMIA [None]
  - ASTHENIA [None]
  - ATRIAL FIBRILLATION [None]
  - BRADYCARDIA [None]
  - CARDIAC FAILURE CONGESTIVE [None]
  - CARDIOACTIVE DRUG LEVEL INCREASED [None]
  - CHRONIC OBSTRUCTIVE PULMONARY DISEASE [None]
  - CONFUSIONAL STATE [None]
  - CONTUSION [None]
  - COR PULMONALE [None]
  - DEHYDRATION [None]
  - DIARRHOEA [None]
  - DIVERTICULUM [None]
  - DYSLIPIDAEMIA [None]
  - DYSPNOEA [None]
  - DYSSTASIA [None]
  - ECONOMIC PROBLEM [None]
  - EMPHYSEMA [None]
  - FALL [None]
  - FATIGUE [None]
  - GASTRITIS [None]
  - GASTROOESOPHAGEAL REFLUX DISEASE [None]
  - HEART RATE INCREASED [None]
  - HEPATIC STEATOSIS [None]
  - HYPERKALAEMIA [None]
  - HYPERTENSION [None]
  - HYPERTRIGLYCERIDAEMIA [None]
  - HYPOMAGNESAEMIA [None]
  - HYPONATRAEMIA [None]
  - HYPOTENSION [None]
  - LIMB INJURY [None]
  - LOSS OF CONSCIOUSNESS [None]
  - MULTIPLE INJURIES [None]
  - OEDEMA PERIPHERAL [None]
  - OSTEOARTHRITIS [None]
  - OSTEOPOROSIS [None]
  - PAIN IN EXTREMITY [None]
  - REFUSAL OF TREATMENT BY PATIENT [None]
  - RENAL FAILURE [None]
  - RENAL FAILURE ACUTE [None]
  - RENAL FAILURE CHRONIC [None]
  - RHINITIS ALLERGIC [None]
  - RIGHT VENTRICULAR FAILURE [None]
  - SKIN LACERATION [None]
  - SOMNOLENCE [None]
  - SURGERY [None]
  - TACHYCARDIA [None]
  - THERAPEUTIC AGENT TOXICITY [None]
  - TREATMENT NONCOMPLIANCE [None]
  - UNEVALUABLE EVENT [None]
  - URINARY TRACT INFECTION [None]
  - VENOUS INSUFFICIENCY [None]
